FAERS Safety Report 7012720 (Version 58)
Quarter: 2015Q3

REPORT INFORMATION
  Report Type: Report from Study
  Country: CA (occurrence: CA)
  Receive Date: 20090605
  Receipt Date: 20150929
  Transmission Date: 20151125
  Serious: Yes (Hospitalization, Other)
  Sender: FDA-Public Use
  Company Number: PHHO2005CA07391

PATIENT
  Age: 61 Year
  Sex: Female

DRUGS (19)
  1. ALTACE [Concomitant]
     Active Substance: RAMIPRIL
     Indication: PRODUCT USED FOR UNKNOWN INDICATION
     Dosage: 5 MG, QD
     Route: 048
  2. PENICILLIN [Concomitant]
     Active Substance: PENICILLIN
     Indication: PRODUCT USED FOR UNKNOWN INDICATION
     Route: 065
  3. COVERSIL [Concomitant]
     Indication: HYPERTENSION
     Route: 065
  4. SANDOSTATIN LAR DEPOT [Suspect]
     Active Substance: OCTREOTIDE ACETATE
     Dosage: 30 MG, QMO
     Route: 030
  5. APO-ATENOL [Concomitant]
     Indication: BLOOD PRESSURE ABNORMAL
     Dosage: 100 MG, QD
     Route: 048
  6. SANDOSTATIN LAR DEPOT [Suspect]
     Active Substance: OCTREOTIDE ACETATE
     Dosage: 30 MG, EVERY 4 WEEKS
     Route: 030
  7. SYNTHROID [Concomitant]
     Active Substance: LEVOTHYROXINE SODIUM
     Indication: PRODUCT USED FOR UNKNOWN INDICATION
     Dosage: 0.115 MG, QD
     Route: 048
  8. APO-FUROSEMIDE [Concomitant]
     Indication: PRODUCT USED FOR UNKNOWN INDICATION
     Dosage: 20 MG, QD
     Route: 048
  9. TRAZODONE [Concomitant]
     Active Substance: TRAZODONE HYDROCHLORIDE
     Indication: DEPRESSION
     Dosage: 50 MG, TID
     Route: 048
  10. APO-METFORMIN [Concomitant]
     Indication: DIABETES MELLITUS
     Dosage: 500 MG, TID
     Route: 048
  11. ALTACE [Concomitant]
     Active Substance: RAMIPRIL
     Dosage: DOSE INCREASED
     Route: 048
     Dates: start: 200502
  12. SANDOSTATIN LAR DEPOT [Suspect]
     Active Substance: OCTREOTIDE ACETATE
     Indication: ACROMEGALY
     Dosage: 20 MG, QMO
     Route: 030
     Dates: start: 20021120
  13. SANDOSTATIN LAR DEPOT [Suspect]
     Active Substance: OCTREOTIDE ACETATE
     Dosage: 20 MG, EVERY 28 DAYS
     Route: 030
  14. TYLENOL [Concomitant]
     Active Substance: ACETAMINOPHEN
     Indication: OSTEITIS DEFORMANS
     Route: 048
  15. TYLENOL [Concomitant]
     Active Substance: ACETAMINOPHEN
     Indication: OSTEOPOROSIS
  16. ROBAXACET [Concomitant]
     Active Substance: ACETAMINOPHEN\METHOCARBAMOL
     Indication: PRODUCT USED FOR UNKNOWN INDICATION
     Route: 065
  17. PREMARIN [Concomitant]
     Active Substance: ESTROGENS, CONJUGATED
     Indication: PRODUCT USED FOR UNKNOWN INDICATION
     Dosage: 0.625 MG, QD
     Route: 048
  18. XANAX [Concomitant]
     Active Substance: ALPRAZOLAM
     Indication: PRODUCT USED FOR UNKNOWN INDICATION
     Dosage: 0.5 MG, QD
     Route: 048
  19. SIMVASTATIN. [Concomitant]
     Active Substance: SIMVASTATIN
     Indication: BLOOD CHOLESTEROL ABNORMAL
     Dosage: 20 MG, QD
     Route: 048

REACTIONS (29)
  - Hyperglycaemia [Unknown]
  - Injection site haematoma [Recovering/Resolving]
  - Diarrhoea [Unknown]
  - Fatigue [Unknown]
  - Periarthritis [Unknown]
  - Pyrexia [Unknown]
  - Arthralgia [Unknown]
  - Pain [Unknown]
  - Hypotension [Unknown]
  - Stress [Unknown]
  - Cardiomegaly [Unknown]
  - Breast mass [Unknown]
  - Musculoskeletal pain [Unknown]
  - Chills [Unknown]
  - Heart rate decreased [Unknown]
  - Pericardial effusion [Unknown]
  - Lung disorder [Unknown]
  - Breast pain [Unknown]
  - Blood pressure increased [Unknown]
  - Insomnia [Unknown]
  - Respiratory rate increased [Unknown]
  - Injection site pain [Recovered/Resolved]
  - Pneumonia [Recovering/Resolving]
  - Musculoskeletal discomfort [Unknown]
  - Anxiety [Unknown]
  - Injection site injury [Unknown]
  - Injection site swelling [Recovered/Resolved]
  - Alopecia [Unknown]
  - Headache [Unknown]

NARRATIVE: CASE EVENT DATE: 20050506
